FAERS Safety Report 18435313 (Version 1)
Quarter: 2020Q4

REPORT INFORMATION
  Report Type: Spontaneous
  Country: US (occurrence: US)
  Receive Date: 20201027
  Receipt Date: 20201027
  Transmission Date: 20210114
  Serious: Yes (Other)
  Sender: FDA-Public Use
  Company Number: None

PATIENT
  Age: 52 Year
  Sex: Female
  Weight: 79.65 kg

DRUGS (5)
  1. RYDAPT [Suspect]
     Active Substance: MIDOSTAURIN
     Indication: MALIGNANT MAST CELL NEOPLASM
     Route: 048
     Dates: start: 20200403, end: 20201027
  2. PEPCID [Concomitant]
     Active Substance: FAMOTIDINE
  3. ALLEGRA [Concomitant]
     Active Substance: FEXOFENADINE HYDROCHLORIDE
  4. ZYRTEC [Concomitant]
     Active Substance: CETIRIZINE HYDROCHLORIDE
  5. RYDAPT [Suspect]
     Active Substance: MIDOSTAURIN
     Indication: HISTIOCYTOSIS
     Route: 048
     Dates: start: 20200403, end: 20201027

REACTIONS (1)
  - Disease progression [None]

NARRATIVE: CASE EVENT DATE: 20201027
